FAERS Safety Report 14671592 (Version 1)
Quarter: 2018Q1

REPORT INFORMATION
  Report Type: Spontaneous
  Country: US (occurrence: US)
  Receive Date: 20180323
  Receipt Date: 20180323
  Transmission Date: 20180509
  Serious: Yes (Other)
  Sender: FDA-Public Use
  Company Number: US-BRISTOL-MYERS SQUIBB COMPANY-BMS-2018-023558

PATIENT
  Sex: Male

DRUGS (9)
  1. LEVOTHYROXINE. [Concomitant]
     Active Substance: LEVOTHYROXINE
     Indication: BLOOD PRESSURE MEASUREMENT
     Route: 065
  2. EMPLICITI [Suspect]
     Active Substance: ELOTUZUMAB
     Indication: PLASMA CELL MYELOMA
     Dosage: UNK, QWK
     Route: 042
     Dates: start: 2017
  3. DEXAMETHASONE. [Concomitant]
     Active Substance: DEXAMETHASONE
     Indication: PRODUCT USED FOR UNKNOWN INDICATION
     Route: 065
  4. EMPLICITI [Suspect]
     Active Substance: ELOTUZUMAB
     Indication: PRODUCT USED FOR UNKNOWN INDICATION
     Dosage: 760 MG, Q2WK
     Route: 042
     Dates: start: 2017
  5. MIDODRINE [Concomitant]
     Active Substance: MIDODRINE
     Indication: BLOOD PRESSURE MEASUREMENT
     Route: 065
  6. REVLIMID [Suspect]
     Active Substance: LENALIDOMIDE
     Indication: PRODUCT USED FOR UNKNOWN INDICATION
     Dosage: 25 MG, UNK
     Route: 065
  7. PRAVASTATIN. [Concomitant]
     Active Substance: PRAVASTATIN
     Indication: BLOOD CHOLESTEROL
     Dosage: 40 MG, UNK
     Route: 065
  8. REVLIMID [Suspect]
     Active Substance: LENALIDOMIDE
     Indication: PRODUCT USED FOR UNKNOWN INDICATION
     Dosage: 10 MG, UNK
     Route: 065
  9. ALLOPURINOL. [Concomitant]
     Active Substance: ALLOPURINOL
     Indication: GOUT
     Route: 065

REACTIONS (17)
  - Inflammation [Unknown]
  - Orthostatic hypotension [Unknown]
  - Prostatic disorder [Unknown]
  - Neurogenic bladder [Unknown]
  - Tonsillar disorder [Unknown]
  - Syncope [Unknown]
  - Hypoaesthesia [Unknown]
  - Balance disorder [Unknown]
  - Musculoskeletal pain [Unknown]
  - Blood pressure fluctuation [Recovering/Resolving]
  - Deep vein thrombosis [Unknown]
  - Gout [Unknown]
  - Spinal disorder [Unknown]
  - Hypertension [Recovering/Resolving]
  - Drug ineffective [Unknown]
  - Neuropathy peripheral [Recovering/Resolving]
  - Sciatic nerve neuropathy [Unknown]
